FAERS Safety Report 5745572-X (Version None)
Quarter: 2008Q2

REPORT INFORMATION
  Report Type: 
  Country: None (occurrence: None)
  Receive Date: 20080519
  Receipt Date: 20080212
  Transmission Date: 20081010
  Serious: No
  Sender: FDA-Public Use
  Company Number: TPA2008A00202

PATIENT
  Age: 54 Year
  Sex: Male
  Weight: 95.2554 kg

DRUGS (4)
  1. ROZEREM [Suspect]
     Indication: INITIAL INSOMNIA
     Dosage: 8 MG, QHS, PER ORAL ; 12 MG, 1.5 TABLETS QHS, PER ORAL ; 16 MG, 2 TABLETS QHS, PER ORAL
     Route: 048
     Dates: start: 20061003, end: 20070216
  2. ROZEREM [Suspect]
     Indication: INITIAL INSOMNIA
     Dosage: 8 MG, QHS, PER ORAL ; 12 MG, 1.5 TABLETS QHS, PER ORAL ; 16 MG, 2 TABLETS QHS, PER ORAL
     Route: 048
     Dates: start: 20070216, end: 20070301
  3. ROZEREM [Suspect]
     Indication: INITIAL INSOMNIA
     Dosage: 8 MG, QHS, PER ORAL ; 12 MG, 1.5 TABLETS QHS, PER ORAL ; 16 MG, 2 TABLETS QHS, PER ORAL
     Route: 048
     Dates: start: 20070301
  4. BENICAR [Concomitant]

REACTIONS (2)
  - DRUG INEFFECTIVE [None]
  - OVERDOSE [None]
